FAERS Safety Report 16210927 (Version 2)
Quarter: 2019Q2

REPORT INFORMATION
  Report Type: Spontaneous
  Country: US (occurrence: US)
  Receive Date: 20190418
  Receipt Date: 20190610
  Transmission Date: 20190711
  Serious: Yes (Hospitalization, Other)
  Sender: FDA-Public Use
  Company Number: US-ROCHE-2305105

PATIENT
  Sex: Female
  Weight: 95.34 kg

DRUGS (20)
  1. ZOLOFT [Concomitant]
     Active Substance: SERTRALINE HYDROCHLORIDE
     Dosage: 50MGLXDAY B12 1000 MG DAILY
     Route: 065
  2. XOLAIR [Suspect]
     Active Substance: OMALIZUMAB
     Indication: CHRONIC SPONTANEOUS URTICARIA
     Route: 058
     Dates: start: 20190219
  3. FLONASE [Concomitant]
     Active Substance: FLUTICASONE PROPIONATE
  4. POTASSIUM CHLORIDE. [Concomitant]
     Active Substance: POTASSIUM CHLORIDE
     Route: 065
  5. CELEBREX [Concomitant]
     Active Substance: CELECOXIB
     Route: 065
  6. DOCOSAHEXAENOIC ACID;EICOSAPENTAENOIC ACID;FISH OIL;OMEGA-3 FATTY ACID [Concomitant]
     Dosage: 650 EPA/4 SODHA
     Route: 065
  7. TRAZODONE HYDROCHLORIDE. [Concomitant]
     Active Substance: TRAZODONE HYDROCHLORIDE
     Dosage: AT NIGHT
     Route: 065
  8. PRAVASTATIN SODIUM. [Concomitant]
     Active Substance: PRAVASTATIN SODIUM
     Route: 065
  9. HCTZ [Concomitant]
     Active Substance: HYDROCHLOROTHIAZIDE
     Dosage: 37.6-25; 1 X DAYS
     Route: 065
  10. OMEPRAZOLE. [Concomitant]
     Active Substance: OMEPRAZOLE
     Route: 065
  11. HIZENTRA [Concomitant]
     Active Substance: HUMAN IMMUNOGLOBULIN G
     Route: 065
  12. DILTIAZEM. [Concomitant]
     Active Substance: DILTIAZEM
     Route: 065
  13. ASPIRIN [ACETYLSALICYLIC ACID] [Concomitant]
     Active Substance: ASPIRIN
     Route: 065
  14. GLIMEPIRIDE. [Concomitant]
     Active Substance: GLIMEPIRIDE
     Route: 065
  15. TRIAMTERENE. [Concomitant]
     Active Substance: TRIAMTERENE
  16. METFORMIN [Concomitant]
     Active Substance: METFORMIN HYDROCHLORIDE
     Route: 065
  17. GABAPENTIN. [Concomitant]
     Active Substance: GABAPENTIN
     Route: 065
  18. BUMETANIDE. [Concomitant]
     Active Substance: BUMETANIDE
     Route: 065
  19. INSULIN [Concomitant]
     Active Substance: INSULIN NOS
     Dosage: 30 UNITS AT BEDTIME
     Route: 065
  20. SYMBICORT [Concomitant]
     Active Substance: BUDESONIDE\FORMOTEROL FUMARATE DIHYDRATE
     Dosage: 2 PUFFS BID
     Route: 065

REACTIONS (9)
  - Acute respiratory failure [Recovering/Resolving]
  - Asthma [Unknown]
  - Product use issue [Unknown]
  - Pneumonia [Recovering/Resolving]
  - Infection [Unknown]
  - Sinus node dysfunction [Not Recovered/Not Resolved]
  - Off label use [Unknown]
  - Hypogammaglobulinaemia [Unknown]
  - Arrhythmia [Unknown]
